FAERS Safety Report 9167068 (Version 1)
Quarter: 2013Q1

REPORT INFORMATION
  Report Type: Spontaneous
  Country: PR (occurrence: PR)
  Receive Date: 20130318
  Receipt Date: 20130318
  Transmission Date: 20140127
  Serious: Yes (Other)
  Sender: FDA-Public Use
  Company Number: PR-RANBAXY-2013US-66162

PATIENT
  Age: 47 Year
  Sex: Male

DRUGS (1)
  1. GABAPENTIN [Suspect]
     Indication: NEURALGIA
     Dosage: UNK
     Route: 065
     Dates: start: 2012

REACTIONS (6)
  - Disorientation [Unknown]
  - Amnesia [Not Recovered/Not Resolved]
  - Abnormal behaviour [Unknown]
  - Somnambulism [Unknown]
  - Convulsion [Recovering/Resolving]
  - Depression [Not Recovered/Not Resolved]
